FAERS Safety Report 10370179 (Version 2)
Quarter: 2014Q3

REPORT INFORMATION
  Report Type: Report from Study
  Country: US (occurrence: US)
  Receive Date: 20140808
  Receipt Date: 20140820
  Transmission Date: 20150326
  Serious: Yes (Hospitalization)
  Sender: FDA-Public Use
  Company Number: PHEH2014US015579

PATIENT
  Sex: Male

DRUGS (2)
  1. CLOZARIL [Suspect]
     Active Substance: CLOZAPINE
     Dosage: 75 MG, UNK
  2. CLOZARIL [Suspect]
     Active Substance: CLOZAPINE
     Dosage: 150 MG, UNK

REACTIONS (6)
  - Irritability [Unknown]
  - Agitation [Unknown]
  - Schizophrenia [Unknown]
  - Schizoaffective disorder [Unknown]
  - Paranoia [Unknown]
  - Abnormal behaviour [Unknown]
